FAERS Safety Report 14292355 (Version 1)
Quarter: 2017Q4

REPORT INFORMATION
  Report Type: Spontaneous
  Country: CA (occurrence: CA)
  Receive Date: 20171215
  Receipt Date: 20171215
  Transmission Date: 20180321
  Serious: Yes (Other)
  Sender: FDA-Public Use
  Company Number: CA-HIKMA PHARMACEUTICALS CO. LTD-2017CA014322

PATIENT

DRUGS (5)
  1. NABILONE [Concomitant]
     Active Substance: NABILONE
     Dosage: 1 MG, DAILY
     Route: 065
  2. CELEBREX [Concomitant]
     Active Substance: CELECOXIB
     Dosage: 200 MG, 2X/DAY
     Route: 065
  3. NAPROSYN [Concomitant]
     Active Substance: NAPROXEN
  4. INFLECTRA [Suspect]
     Active Substance: INFLIXIMAB-DYYB
     Indication: ANKYLOSING SPONDYLITIS
     Dosage: 810 MG, CYCLIC (EVERY 0, 2, 6, WEEKS, THEN EVERY 8 WEEKS)
     Route: 042
     Dates: start: 20171006
  5. FUROSEMIDE. [Concomitant]
     Active Substance: FUROSEMIDE
     Dosage: 40 MG, AS NEEDED
     Route: 065

REACTIONS (9)
  - Somnolence [Unknown]
  - Blood pressure fluctuation [Recovered/Resolved]
  - Fatigue [Unknown]
  - Migraine [Unknown]
  - Muscle spasms [Unknown]
  - Arthralgia [Unknown]
  - Drug ineffective [Unknown]
  - Blood pressure fluctuation [Recovered/Resolved]
  - Hypertension [Unknown]

NARRATIVE: CASE EVENT DATE: 20171006
